FAERS Safety Report 7597919-X (Version None)
Quarter: 2011Q3

REPORT INFORMATION
  Report Type: 
  Country: None (occurrence: None)
  Receive Date: 20110708
  Receipt Date: 20110706
  Transmission Date: 20111222
  Serious: Yes (Other)
  Sender: FDA-Public Use
  Company Number: US-PFIZER INC-2011153065

PATIENT
  Sex: Female

DRUGS (2)
  1. DILANTIN [Suspect]
  2. PHENYTOIN [Suspect]

REACTIONS (1)
  - CONVULSION [None]
